FAERS Safety Report 25989772 (Version 1)
Quarter: 2025Q4

REPORT INFORMATION
  Report Type: Spontaneous
  Country: TW (occurrence: TW)
  Receive Date: 20251103
  Receipt Date: 20251103
  Transmission Date: 20260118
  Serious: Yes (Other)
  Sender: BRISTOL-MYERS SQUIBB COMPANY
  Company Number: TW-BRISTOL-MYERS SQUIBB COMPANY-2025-148195

PATIENT
  Age: 43 Year
  Sex: Male

DRUGS (4)
  1. OPDIVO [Suspect]
     Active Substance: NIVOLUMAB
     Indication: Pancreatic carcinoma metastatic
     Route: 042
     Dates: start: 20240829, end: 20250325
  2. GEMCITABINE HYDROCHLORIDE [Suspect]
     Active Substance: GEMCITABINE HYDROCHLORIDE
     Indication: Pancreatic carcinoma metastatic
     Dosage: (GEMCITABINE 200MG/VIAL) 1210-1330MG
     Route: 042
     Dates: start: 20240801, end: 20250325
  3. ORECTALIP [Concomitant]
     Indication: Pancreatic carcinoma metastatic
     Dosage: ORECTALIP (OXALIPLATIN 100MG/20ML/VIAL) 129-140MG
     Route: 042
     Dates: start: 20240801, end: 20250325
  4. TS-1 [Concomitant]
     Active Substance: GIMERACIL\OTERACIL POTASSIUM\TEGAFUR
     Indication: Pancreatic carcinoma metastatic
     Dosage: TS-1 (TEGAFUR 20MG + GIMERACIL 5.8MG + OTERACIL POTASSIUM 19.6MG/CAP) 3 CAPSULES BID
     Route: 048
     Dates: start: 20240801

REACTIONS (3)
  - Blepharitis [Recovered/Resolved]
  - Neutropenia [Recovered/Resolved]
  - Off label use [Unknown]

NARRATIVE: CASE EVENT DATE: 20241005
